FAERS Safety Report 23314907 (Version 1)
Quarter: 2023Q4

REPORT INFORMATION
  Report Type: Spontaneous
  Country: US (occurrence: US)
  Receive Date: 20231219
  Receipt Date: 20231219
  Transmission Date: 20240110
  Serious: Yes (Hospitalization, Other)
  Sender: FDA-Public Use
  Company Number: US-ELI_LILLY_AND_COMPANY-US202312008345

PATIENT
  Sex: Female

DRUGS (1)
  1. HUMALOG [Suspect]
     Active Substance: INSULIN LISPRO
     Indication: Product used for unknown indication
     Dosage: UNK UNK, UNKNOWN
     Route: 065
     Dates: start: 2007

REACTIONS (5)
  - Myocardial infarction [Unknown]
  - Sepsis [Unknown]
  - Age-related macular degeneration [Unknown]
  - Diabetic retinopathy [Unknown]
  - Eye disorder [Unknown]

NARRATIVE: CASE EVENT DATE: 20220201
